FAERS Safety Report 16247126 (Version 4)
Quarter: 2019Q3

REPORT INFORMATION
  Report Type: Report from Study
  Country: None (occurrence: NL)
  Receive Date: 20190427
  Receipt Date: 20190821
  Transmission Date: 20191004
  Serious: Yes (Other)
  Sender: FDA-Public Use
  Company Number: NL-ABBVIE-19S-114-2755287-00

PATIENT
  Age: 71 Year
  Sex: Male

DRUGS (2)
  1. DUODOPA [Suspect]
     Active Substance: CARBIDOPA\LEVODOPA
     Indication: PARKINSON^S DISEASE
     Dosage: MD 8,5ML CDD 6,6ML/U CDN 3ML/U ED 2ML.
     Route: 050
     Dates: start: 20181009
  2. DUODOPA [Suspect]
     Active Substance: CARBIDOPA\LEVODOPA
     Route: 050

REACTIONS (32)
  - Medical device site irritation [Not Recovered/Not Resolved]
  - Abnormal faeces [Not Recovered/Not Resolved]
  - Pollakiuria [Recovered/Resolved]
  - Paraesthesia [Unknown]
  - Parkinson^s disease [Not Recovered/Not Resolved]
  - Stoma site irritation [Recovered/Resolved]
  - Device use error [Not Recovered/Not Resolved]
  - Delusion [Recovered/Resolved]
  - Device dislocation [Not Recovered/Not Resolved]
  - Taste disorder [Not Recovered/Not Resolved]
  - Pain [Recovered/Resolved]
  - Medical device site pain [Not Recovered/Not Resolved]
  - Hypoaesthesia [Unknown]
  - Vision blurred [Not Recovered/Not Resolved]
  - Weight decreased [Not Recovered/Not Resolved]
  - Post procedural complication [Unknown]
  - Delusion [Not Recovered/Not Resolved]
  - Blindness [Not Recovered/Not Resolved]
  - Parosmia [Not Recovered/Not Resolved]
  - Oedema peripheral [Unknown]
  - Medical device site pain [Recovered/Resolved]
  - Device expulsion [Unknown]
  - Musculoskeletal stiffness [Not Recovered/Not Resolved]
  - Gait inability [Not Recovered/Not Resolved]
  - Overdose [Not Recovered/Not Resolved]
  - Embedded device [Recovered/Resolved]
  - Abdominal distension [Not Recovered/Not Resolved]
  - Stoma complication [Recovered/Resolved]
  - Loss of consciousness [Recovered/Resolved]
  - Obsessive-compulsive disorder [Not Recovered/Not Resolved]
  - Abnormal dreams [Not Recovered/Not Resolved]
  - Hallucination [Recovered/Resolved]

NARRATIVE: CASE EVENT DATE: 201902
